FAERS Safety Report 17219577 (Version 1)
Quarter: 2019Q4

REPORT INFORMATION
  Report Type: Spontaneous
  Country: US (occurrence: US)
  Receive Date: 20191209
  Receipt Date: 20191209
  Transmission Date: 20200122
  Serious: Yes (Hospitalization)
  Sender: FDA-Public Use
  Company Number: None

PATIENT
  Age: 57 Year
  Sex: Female

DRUGS (1)
  1. OCREVUS [Suspect]
     Active Substance: OCRELIZUMAB
     Indication: MULTIPLE SCLEROSIS
     Dosage: ?          OTHER DOSE:300MG/10ML ;OTHER FREQUENCY:EVERY 6 MO;?
     Route: 042
     Dates: start: 20180202

REACTIONS (4)
  - Pancreatic disorder [None]
  - Gallbladder disorder [None]
  - Ammonia abnormal [None]
  - Cardiac arrest [None]

NARRATIVE: CASE EVENT DATE: 20190801
